FAERS Safety Report 17263219 (Version 1)
Quarter: 2019Q4

REPORT INFORMATION
  Report Type: Spontaneous
  Country: US (occurrence: US)
  Receive Date: 20191219
  Receipt Date: 20191219
  Transmission Date: 20200122
  Serious: No
  Sender: FDA-Public Use
  Company Number: None

PATIENT
  Sex: Female

DRUGS (1)
  1. REPATHA [Suspect]
     Active Substance: EVOLOCUMAB
     Indication: HYPERLIPIDAEMIA
     Dosage: ?          OTHER DOSE:1 PEN; EVERY 2 WEEKS?
     Route: 058
     Dates: start: 20190408

REACTIONS (2)
  - Parathyroidectomy [None]
  - Therapy cessation [None]
